FAERS Safety Report 10050773 (Version 2)
Quarter: 2014Q2

REPORT INFORMATION
  Report Type: Spontaneous
  Country: US (occurrence: US)
  Receive Date: 20140401
  Receipt Date: 20140401
  Transmission Date: 20141212
  Serious: No
  Sender: FDA-Public Use
  Company Number: US-ASTRAZENECA-2013SE66764

PATIENT
  Age: 49 Year
  Sex: Female
  Weight: 61.7 kg

DRUGS (6)
  1. NEXIUM [Suspect]
     Indication: GASTROOESOPHAGEAL REFLUX DISEASE
     Route: 048
     Dates: start: 20130823
  2. NEXIUM [Suspect]
     Indication: GASTROOESOPHAGEAL REFLUX DISEASE
     Route: 048
     Dates: start: 20130823
  3. OMEPRAZOLE [Suspect]
     Indication: GASTROOESOPHAGEAL REFLUX DISEASE
     Route: 048
  4. OMEPRAZOLE [Suspect]
     Indication: GASTROOESOPHAGEAL REFLUX DISEASE
     Route: 048
     Dates: end: 20130825
  5. MUTLIVITAMIN [Concomitant]
     Indication: VITAMIN SUPPLEMENTATION
     Route: 048
  6. IBUPROFEN [Concomitant]
     Indication: PAIN
     Route: 048

REACTIONS (9)
  - Chest discomfort [Unknown]
  - Blood pressure increased [Unknown]
  - Palpitations [Unknown]
  - Muscle spasms [Unknown]
  - Contusion [Unknown]
  - Diarrhoea [Recovered/Resolved]
  - Blood magnesium decreased [Unknown]
  - Headache [Unknown]
  - Drug ineffective [Unknown]
